FAERS Safety Report 8811911 (Version 1)
Quarter: 2012Q4

REPORT INFORMATION
  Report Type: Spontaneous
  Country: US (occurrence: None)
  Receive Date: 20120926
  Receipt Date: 20120926
  Transmission Date: 20130627
  Serious: Yes (Other)
  Sender: FDA-Public Use
  Company Number: None

PATIENT
  Age: 28 Year
  Sex: Female

DRUGS (1)
  1. ENBREL [Suspect]
     Dosage: 50 mg weekly subq
     Route: 058
     Dates: start: 20120829

REACTIONS (3)
  - Pain in extremity [None]
  - Pain in extremity [None]
  - Muscle disorder [None]
